FAERS Safety Report 8836262 (Version 1)
Quarter: 2012Q4

REPORT INFORMATION
  Report Type: 
  Country: FR (occurrence: FR)
  Receive Date: 20121011
  Receipt Date: 20121011
  Transmission Date: 20130627
  Serious: Yes (Other)
  Sender: FDA-Public Use
  Company Number: FR-ASTRAZENECA-2012SE76230

PATIENT
  Age: 10961 Day
  Sex: Female

DRUGS (7)
  1. XYLOCAINE [Suspect]
     Dates: start: 20120902
  2. NAROPEINE [Suspect]
     Dates: start: 20120902
  3. NAROPEINE [Suspect]
     Dates: start: 20120902
  4. SYNTOCINON [Suspect]
     Route: 042
     Dates: start: 20120902
  5. AZANTAC [Suspect]
     Route: 048
     Dates: start: 20120902
  6. SUFENTA [Concomitant]
     Dates: start: 20120902
  7. SUFENTA [Concomitant]
     Dates: start: 20120902

REACTIONS (4)
  - Pruritus [Recovered/Resolved]
  - Pharyngeal oedema [Recovered/Resolved]
  - Face oedema [Recovered/Resolved]
  - Macroglossia [Recovered/Resolved]
